FAERS Safety Report 9712211 (Version 1)
Quarter: 2013Q4

REPORT INFORMATION
  Report Type: Spontaneous
  Country: US (occurrence: US)
  Receive Date: 20131126
  Receipt Date: 20131126
  Transmission Date: 20140711
  Serious: No
  Sender: FDA-Public Use
  Company Number: US-BRISTOL-MYERS SQUIBB COMPANY-19146984

PATIENT
  Age: 62 Year
  Sex: Female
  Weight: 86.17 kg

DRUGS (2)
  1. BYDUREON [Suspect]
     Indication: TYPE 2 DIABETES MELLITUS
  2. METFORMIN [Concomitant]
     Route: 048

REACTIONS (3)
  - Decreased appetite [Recovered/Resolved]
  - Product quality issue [Unknown]
  - Drug dose omission [Unknown]
